FAERS Safety Report 14505418 (Version 3)
Quarter: 2018Q2

REPORT INFORMATION
  Report Type: Spontaneous
  Country: US (occurrence: US)
  Receive Date: 20180208
  Receipt Date: 20180523
  Transmission Date: 20180711
  Serious: Yes (Hospitalization, Other)
  Sender: FDA-Public Use
  Company Number: US-TAKEDA-2018TUS002796

PATIENT
  Age: 23 Year
  Sex: Female

DRUGS (1)
  1. ENTYVIO [Suspect]
     Active Substance: VEDOLIZUMAB
     Indication: CROHN^S DISEASE
     Dosage: UNK
     Route: 042
     Dates: start: 201411

REACTIONS (7)
  - Intestinal fistula [Unknown]
  - Deep vein thrombosis [Unknown]
  - Abdominal hernia [Unknown]
  - Menstrual disorder [Unknown]
  - Crohn^s disease [Unknown]
  - Paraesthesia [Unknown]
  - Intestinal anastomosis complication [Unknown]

NARRATIVE: CASE EVENT DATE: 201502
